FAERS Safety Report 6531854-0 (Version None)
Quarter: 2010Q1

REPORT INFORMATION
  Report Type: 
  Country: None (occurrence: None)
  Receive Date: 20100108
  Receipt Date: 20091229
  Transmission Date: 20100710
  Serious: Yes (Other)
  Sender: FDA-Public Use
  Company Number: US-JNJFOC-20100100380

PATIENT
  Age: 65 Year
  Sex: Male
  Weight: 86.18 kg

DRUGS (4)
  1. TYLENOL (CAPLET) [Suspect]
     Route: 048
  2. TYLENOL (CAPLET) [Suspect]
     Indication: ARTHRITIS
     Route: 048
  3. LISINOPRIL [Concomitant]
     Indication: HYPERTENSION
  4. INHALER [Concomitant]
     Indication: DYSPNOEA

REACTIONS (3)
  - DRUG INEFFECTIVE [None]
  - EYE INFECTION [None]
  - PRODUCT QUALITY ISSUE [None]
